FAERS Safety Report 15397936 (Version 1)
Quarter: 2018Q3

REPORT INFORMATION
  Report Type: Spontaneous
  Country: US (occurrence: US)
  Receive Date: 20180913
  Receipt Date: 20180913
  Transmission Date: 20181010
  Serious: Yes (Disabling)
  Sender: FDA-Public Use
  Company Number: None

PATIENT
  Age: 56 Year
  Sex: Male

DRUGS (1)
  1. MRI CONTRAST AGENT (GADOLINIUM) [Suspect]
     Active Substance: GADOLINIUM

REACTIONS (5)
  - Arthralgia [None]
  - Tinnitus [None]
  - Burning sensation [None]
  - Headache [None]
  - Feeling abnormal [None]

NARRATIVE: CASE EVENT DATE: 20180621
